FAERS Safety Report 4415366-6 (Version None)
Quarter: 2004Q2

REPORT INFORMATION
  Report Type: 
  Country: None (occurrence: None)
  Receive Date: 20040630
  Receipt Date: 20030725
  Transmission Date: 20050107
  Serious: Yes (Hospitalization, Other)
  Sender: FDA-Public Use
  Company Number: 2003031978

PATIENT
  Sex: Female

DRUGS (5)
  1. ZOLOFT [Suspect]
     Indication: ILL-DEFINED DISORDER
  2. NEURONTIN [Suspect]
     Indication: NEUROPATHY PERIPHERAL
  3. ALPRAZOLAM [Suspect]
     Indication: ANXIETY
  4. ALPRAZOLAM [Suspect]
     Indication: HEART RATE INCREASED
  5. ALPRAZOLAM [Suspect]
     Indication: PANIC ATTACK

REACTIONS (11)
  - ABNORMAL DREAMS [None]
  - ANXIETY [None]
  - BLOOD PRESSURE DECREASED [None]
  - BRADYCARDIA [None]
  - DIABETES MELLITUS [None]
  - DRUG INTERACTION [None]
  - HEART RATE INCREASED [None]
  - INSOMNIA [None]
  - NEUROPATHY [None]
  - NIGHTMARE [None]
  - PANIC ATTACK [None]
